FAERS Safety Report 5688100-X (Version None)
Quarter: 2008Q1

REPORT INFORMATION
  Report Type: 
  Country: None (occurrence: None)
  Receive Date: 20080327
  Receipt Date: 20080311
  Transmission Date: 20080703
  Serious: Yes (Death, Hospitalization)
  Sender: FDA-Public Use
  Company Number: B0513383A

PATIENT
  Age: 45 Year
  Sex: Male

DRUGS (5)
  1. LAMIVUDINE [Suspect]
     Indication: HIV INFECTION
  2. TENOFOVIR (FORMULATION UNKNOWN) (TENOFOVIR) [Suspect]
     Indication: HIV INFECTION
  3. EFAVIRENZ [Suspect]
     Indication: HIV INFECTION
  4. CO-TRIMOXAZOLE [Concomitant]
  5. PREDNISONE [Concomitant]

REACTIONS (14)
  - CEREBRAL INFARCTION [None]
  - COAGULOPATHY [None]
  - EPSTEIN-BARR VIRUS INFECTION [None]
  - HEPATITIS [None]
  - HISTIOCYTOSIS HAEMATOPHAGIC [None]
  - HODGKIN'S DISEASE [None]
  - IMMUNE RECONSTITUTION SYNDROME [None]
  - INTERNATIONAL NORMALISED RATIO INCREASED [None]
  - LEUKOENCEPHALOPATHY [None]
  - NERVOUS SYSTEM DISORDER [None]
  - PANCYTOPENIA [None]
  - PNEUMONIA [None]
  - RENAL FAILURE ACUTE [None]
  - RETROPERITONEAL HAEMORRHAGE [None]
